FAERS Safety Report 9448125 (Version 1)
Quarter: 2013Q3

REPORT INFORMATION
  Report Type: Spontaneous
  Country: US (occurrence: US)
  Receive Date: 20130808
  Receipt Date: 20130808
  Transmission Date: 20140515
  Serious: No
  Sender: FDA-Public Use
  Company Number: US-009507513-1308USA001862

PATIENT
  Age: 40 Year
  Sex: Female
  Weight: 83.9 kg

DRUGS (1)
  1. SAPHRIS [Suspect]
     Indication: BIPOLAR DISORDER
     Dosage: 5 MG, ONCE
     Route: 060
     Dates: start: 20100315

REACTIONS (11)
  - Cough [Unknown]
  - Abasia [Unknown]
  - Dizziness [Unknown]
  - Dysphagia [Unknown]
  - Emotional disorder [Unknown]
  - Formication [Unknown]
  - Glossodynia [Unknown]
  - Hypoaesthesia oral [Unknown]
  - Memory impairment [Unknown]
  - Underdose [Unknown]
  - Burning mouth syndrome [Unknown]
